FAERS Safety Report 9436240 (Version 2)
Quarter: 2013Q4

REPORT INFORMATION
  Report Type: Spontaneous
  Country: CO (occurrence: CO)
  Receive Date: 20130802
  Receipt Date: 20131119
  Transmission Date: 20140711
  Serious: Yes (Hospitalization)
  Sender: FDA-Public Use
  Company Number: CO-AMGEN-COLSP2013053483

PATIENT
  Age: 84 Year
  Sex: Male

DRUGS (2)
  1. PEGFILGRASTIM [Suspect]
     Indication: NON-HODGKIN^S LYMPHOMA
     Dosage: 6 MG, 1 IN 1 M
     Route: 058
     Dates: start: 201306
  2. RITUXIMAB [Suspect]
     Indication: NON-HODGKIN^S LYMPHOMA
     Dosage: 700 MG, 1 IN 21 DAYS
     Route: 042
     Dates: start: 20130627

REACTIONS (2)
  - Pneumonia [Recovered/Resolved]
  - Aplasia pure red cell [Recovered/Resolved]
